FAERS Safety Report 18819581 (Version 2)
Quarter: 2021Q1

REPORT INFORMATION
  Report Type: Spontaneous
  Country: US (occurrence: US)
  Receive Date: 20210201
  Receipt Date: 20210219
  Transmission Date: 20210419
  Serious: Yes (Death)
  Sender: FDA-Public Use
  Company Number: US-PFIZER INC-2021081942

PATIENT
  Age: 49 Year
  Sex: Male

DRUGS (2)
  1. BRAFTOVI [Suspect]
     Active Substance: ENCORAFENIB
     Indication: RECTOSIGMOID CANCER
     Dosage: 300 MG, 1X/DAY
     Dates: start: 20210125, end: 20210125
  2. MEKTOVI [Suspect]
     Active Substance: BINIMETINIB
     Indication: RECTOSIGMOID CANCER
     Dosage: UNK (45 EVERY 12 HOURS)
     Dates: start: 20210125, end: 20210125

REACTIONS (3)
  - Death [Fatal]
  - Off label use [Unknown]
  - General physical health deterioration [Unknown]

NARRATIVE: CASE EVENT DATE: 20210125
